FAERS Safety Report 6695876-1 (Version None)
Quarter: 2010Q2

REPORT INFORMATION
  Report Type: 
  Country: None (occurrence: None)
  Receive Date: 20100426
  Receipt Date: 20091124
  Transmission Date: 20101027
  Serious: No
  Sender: FDA-Public Use
  Company Number: A0826647A

PATIENT

DRUGS (1)
  1. ZOFRAN [Suspect]
     Route: 030

REACTIONS (1)
  - INTENTIONAL DRUG MISUSE [None]
